FAERS Safety Report 5648452-3 (Version None)
Quarter: 2008Q1

REPORT INFORMATION
  Report Type: 
  Country: None (occurrence: None)
  Receive Date: 20080131
  Receipt Date: 20071218
  Transmission Date: 20080703
  Serious: No
  Sender: FDA-Public Use
  Company Number: US200712003954

PATIENT
  Age: 76 Year
  Sex: Male
  Weight: 90.7 kg

DRUGS (9)
  1. BYETTA [Suspect]
     Indication: TYPE 2 DIABETES MELLITUS
     Dosage: 5 UG, 2/D, SUBCUTANEOUS; 10 UG,2/D,SUBCUTANEOUS
     Route: 058
     Dates: start: 20061001, end: 20070101
  2. BYETTA [Suspect]
     Indication: TYPE 2 DIABETES MELLITUS
     Dosage: 5 UG, 2/D, SUBCUTANEOUS; 10 UG,2/D,SUBCUTANEOUS
     Route: 058
     Dates: start: 20070101, end: 20071201
  3. GLIPIZIDE [Concomitant]
  4. STARLIX (NATEGLINDE) [Concomitant]
  5. FENOFIBRATE [Concomitant]
  6. ZETIA [Concomitant]
  7. ..... [Concomitant]
  8. .... [Concomitant]
  9. ..... [Concomitant]

REACTIONS (3)
  - BLOOD GLUCOSE INCREASED [None]
  - DECREASED APPETITE [None]
  - WEIGHT DECREASED [None]
